FAERS Safety Report 20939858 (Version 1)
Quarter: 2022Q2

REPORT INFORMATION
  Report Type: Spontaneous
  Country: US (occurrence: None)
  Receive Date: 20220609
  Receipt Date: 20220609
  Transmission Date: 20220721
  Serious: No
  Sender: FDA-Public Use
  Company Number: None

PATIENT
  Sex: Female

DRUGS (1)
  1. LENALIDOMIDE [Suspect]
     Active Substance: LENALIDOMIDE
     Indication: Plasma cell myeloma
     Dosage: 5MG DAILY BY MOUTH?
     Route: 048
     Dates: start: 20220318, end: 202206

REACTIONS (5)
  - Adverse drug reaction [None]
  - Pain [None]
  - Diarrhoea [None]
  - Product substitution issue [None]
  - Product supply issue [None]
